FAERS Safety Report 11419107 (Version 1)
Quarter: 2015Q3

REPORT INFORMATION
  Report Type: Spontaneous
  Country: US (occurrence: None)
  Receive Date: 20150820
  Receipt Date: 20150820
  Transmission Date: 20151125
  Serious: No
  Sender: FDA-Public Use
  Company Number: PHEH2015US011829

PATIENT
  Age: 48 Year
  Sex: Male

DRUGS (3)
  1. COSENTYX [Suspect]
     Active Substance: SECUKINUMAB
     Indication: PRODUCT USED FOR UNKNOWN INDICATION
     Dates: start: 20150516
  2. LOSARTAN. [Concomitant]
     Active Substance: LOSARTAN
  3. VITAMIN D//COLECALCIFEROL (COLECALCIFEROL) [Concomitant]

REACTIONS (3)
  - Urticaria [None]
  - Hypersensitivity [None]
  - Rash generalised [None]

NARRATIVE: CASE EVENT DATE: 20150616
